FAERS Safety Report 5087953-6 (Version None)
Quarter: 2006Q3

REPORT INFORMATION
  Report Type: 
  Country: None (occurrence: None)
  Receive Date: 20060822
  Receipt Date: 20060822
  Transmission Date: 20061208
  Serious: Yes (Death)
  Sender: FDA-Public Use
  Company Number: None

PATIENT
  Age: 11 Month
  Sex: Female
  Weight: 9.8 kg

DRUGS (2)
  1. BACTRIM [Suspect]
     Indication: ANTIBIOTIC PROPHYLAXIS
     Dosage: 48MG QD
     Dates: start: 20051129, end: 20060723
  2. ISONIAZID [Suspect]
     Indication: ANTIBIOTIC PROPHYLAXIS
     Dosage: 150MG QD
     Dates: start: 20051129, end: 20060723

REACTIONS (4)
  - ASPHYXIA [None]
  - CREPITATIONS [None]
  - OTITIS MEDIA [None]
  - STATUS EPILEPTICUS [None]
